FAERS Safety Report 4459253-6 (Version None)
Quarter: 2004Q3

REPORT INFORMATION
  Report Type: 
  Country: None (occurrence: None)
  Receive Date: 20040922
  Receipt Date: 20040922
  Transmission Date: 20050211
  Serious: Yes (Other)
  Sender: FDA-Public Use
  Company Number: None

PATIENT
  Sex: Male
  Weight: 31.7518 kg

DRUGS (9)
  1. CEPHALEXIN [Suspect]
     Indication: CELLULITIS
     Dosage: 250 MG QID ORAL
     Route: 048
     Dates: start: 20040813, end: 20040818
  2. CLONIDINE HCL [Concomitant]
  3. FOLIC ACID [Concomitant]
  4. METOCLOPRAMIDE [Concomitant]
  5. NICOTINE [Concomitant]
  6. OLANZAPINE [Concomitant]
  7. RANITIDINE [Concomitant]
  8. TRAZODONE HCL [Concomitant]
  9. LORAZEPAM [Concomitant]

REACTIONS (1)
  - NIGHTMARE [None]
